FAERS Safety Report 6377196-8 (Version None)
Quarter: 2009Q3

REPORT INFORMATION
  Report Type: 
  Country: None (occurrence: None)
  Receive Date: 20090925
  Receipt Date: 20090917
  Transmission Date: 20100115
  Serious: Yes (Hospitalization)
  Sender: FDA-Public Use
  Company Number: A0796266A

PATIENT
  Age: 63 Year
  Sex: Male

DRUGS (2)
  1. REQUIP [Suspect]
     Indication: RESTLESS LEGS SYNDROME
     Route: 048
     Dates: start: 20061111, end: 20090426
  2. AMBIEN [Suspect]

REACTIONS (4)
  - GAMBLING [None]
  - MENTAL STATUS CHANGES [None]
  - OVERDOSE [None]
  - SYNCOPE [None]
